FAERS Safety Report 23382924 (Version 2)
Quarter: 2024Q1

REPORT INFORMATION
  Report Type: Spontaneous
  Country: MM (occurrence: MM)
  Receive Date: 20240109
  Receipt Date: 20240221
  Transmission Date: 20240410
  Serious: Yes (Other)
  Sender: FDA-Public Use
  Company Number: MM-JNJFOC-20240101491

PATIENT
  Age: 44 Year
  Sex: Female
  Weight: 46 kg

DRUGS (11)
  1. SIRTURO [Suspect]
     Active Substance: BEDAQUILINE FUMARATE
     Indication: Product used for unknown indication
     Dosage: 100 MG 2 TABLETS OD
     Route: 048
     Dates: start: 20230627
  2. LINEZOLID [Suspect]
     Active Substance: LINEZOLID
     Indication: Product used for unknown indication
     Route: 065
     Dates: start: 20230627, end: 20231212
  3. LEVOFLOXACIN [Suspect]
     Active Substance: LEVOFLOXACIN
     Indication: Product used for unknown indication
     Dosage: 250 MG 4 OD
     Route: 065
     Dates: start: 20230627
  4. CLOFAZIMINE [Suspect]
     Active Substance: CLOFAZIMINE
     Indication: Product used for unknown indication
     Dosage: 100 MG 1 OD
     Route: 065
     Dates: start: 20230627
  5. PYRAZINAMIDE [Suspect]
     Active Substance: PYRAZINAMIDE
     Indication: Product used for unknown indication
     Dosage: 500 MG 3 OD
     Route: 065
     Dates: start: 20230627
  6. ETHIONAMIDE [Concomitant]
     Active Substance: ETHIONAMIDE
     Indication: Product used for unknown indication
     Dosage: 250 MG 3 OD
     Route: 065
     Dates: start: 20231213, end: 20231230
  7. DELAMANID [Concomitant]
     Active Substance: DELAMANID
     Indication: Product used for unknown indication
     Route: 048
     Dates: start: 20231229, end: 20240209
  8. PYRIDOXINE [Concomitant]
     Active Substance: PYRIDOXINE
     Indication: Prophylaxis
     Dosage: 50 MG 4 TABLETS OD
     Route: 048
     Dates: start: 20230628
  9. KCL [Concomitant]
     Active Substance: POTASSIUM CHLORIDE
     Indication: Hypokalaemia
     Dosage: BD
     Route: 065
     Dates: start: 20240208
  10. MAGNESIUM EASY TO SWALLOW [Concomitant]
     Dosage: BD
     Dates: start: 20240208
  11. CALCIUM [Concomitant]
     Active Substance: CALCIUM
     Dates: start: 20240208, end: 20240213

REACTIONS (2)
  - Neuropathy peripheral [Recovering/Resolving]
  - Optic neuritis [Recovering/Resolving]

NARRATIVE: CASE EVENT DATE: 20231024
